FAERS Safety Report 8928007 (Version 1)
Quarter: 2012Q4

REPORT INFORMATION
  Report Type: Spontaneous
  Country: US (occurrence: None)
  Receive Date: 20121121
  Receipt Date: 20121121
  Transmission Date: 20130627
  Serious: No
  Sender: FDA-Public Use
  Company Number: None

PATIENT
  Age: 64 Year
  Sex: Female
  Weight: 44.2 kg

DRUGS (1)
  1. FERRLECIT [Suspect]
     Indication: IRON DEFICIENCY ANEMIA

REACTIONS (4)
  - Chest discomfort [None]
  - Oropharyngeal pain [None]
  - Dyspnoea [None]
  - Gastrooesophageal reflux disease [None]
